FAERS Safety Report 5151352-9 (Version None)
Quarter: 2006Q4

REPORT INFORMATION
  Report Type: 
  Country: None (occurrence: None)
  Receive Date: 20061115
  Receipt Date: 20060308
  Transmission Date: 20070319
  Serious: Yes (Other)
  Sender: FDA-Public Use
  Company Number: PHFR2006CY01122

PATIENT
  Age: 70 Year
  Sex: Male

DRUGS (1)
  1. ZOMETA [Suspect]
     Indication: METASTASES TO BONE
     Dosage: 4 MG, QMO
     Route: 042

REACTIONS (3)
  - INJURY [None]
  - OSTEONECROSIS [None]
  - TOOTH EXTRACTION [None]
